FAERS Safety Report 21579598 (Version 1)
Quarter: 2022Q4

REPORT INFORMATION
  Report Type: Spontaneous
  Country: CA (occurrence: CA)
  Receive Date: 20221110
  Receipt Date: 20221110
  Transmission Date: 20230113
  Serious: Yes (Hospitalization, Other)
  Sender: FDA-Public Use
  Company Number: CA-PFIZER INC-202201286848

PATIENT
  Age: 54 Year
  Sex: Female
  Weight: 94 kg

DRUGS (17)
  1. VINCRISTINE SULFATE [Suspect]
     Active Substance: VINCRISTINE SULFATE
     Indication: Ewing^s sarcoma
     Dosage: 2 MG, CYCLIC
     Route: 041
  2. ADRIAMYCIN [Suspect]
     Active Substance: DOXORUBICIN HYDROCHLORIDE
     Indication: Ewing^s sarcoma
     Dosage: 150 MG, CYCLIC
     Route: 041
  3. CYTOXAN [Suspect]
     Active Substance: CYCLOPHOSPHAMIDE
     Indication: Ewing^s sarcoma
     Dosage: 2400 MG, CYCLIC
     Route: 041
  4. FRAGMIN [Concomitant]
     Active Substance: DALTEPARIN SODIUM
  5. HYDROMORPHONE [Concomitant]
     Active Substance: HYDROMORPHONE
  6. LORAZEPAM [Concomitant]
     Active Substance: LORAZEPAM
  7. METOCLOPRAMIDE [Concomitant]
     Active Substance: METOCLOPRAMIDE
  8. MIRTAZAPINE [Concomitant]
     Active Substance: MIRTAZAPINE
  9. NYSTATIN [Concomitant]
     Active Substance: NYSTATIN
  10. ONDANSETRON [Concomitant]
     Active Substance: ONDANSETRON
  11. PANTOPRAZOLE [Concomitant]
     Active Substance: PANTOPRAZOLE
  12. POLYETHYLENE GLYCOLS [Concomitant]
     Active Substance: POLYETHYLENE GLYCOLS
  13. POTASSIUM CHLORIDE [Concomitant]
     Active Substance: POTASSIUM CHLORIDE
  14. PREGABALIN [Concomitant]
     Active Substance: PREGABALIN
  15. SENNOSIDES [Concomitant]
     Active Substance: SENNOSIDES
  16. VALACYCLOVIR [Concomitant]
     Active Substance: VALACYCLOVIR HYDROCHLORIDE
  17. ZOPICLONE [Concomitant]
     Active Substance: ZOPICLONE

REACTIONS (4)
  - Bacteraemia [Unknown]
  - Febrile neutropenia [Unknown]
  - Klebsiella test positive [Unknown]
  - Transfusion [Unknown]
